FAERS Safety Report 4622608-0 (Version None)
Quarter: 2005Q1

REPORT INFORMATION
  Report Type: 
  Country: None (occurrence: None)
  Receive Date: 20050325
  Receipt Date: 20050325
  Transmission Date: 20050727
  Serious: Yes (Hospitalization)
  Sender: FDA-Public Use
  Company Number: None

PATIENT
  Sex: Male

DRUGS (3)
  1. WARFARIN [Suspect]
     Indication: PNEUMONIA
     Dosage: ORAL
     Route: 048
  2. CIPROFLOXACIN [Suspect]
  3. LEVOFLOXACIN [Suspect]

REACTIONS (3)
  - ABDOMINAL HAEMATOMA [None]
  - DRUG INTERACTION [None]
  - INTERNATIONAL NORMALISED RATIO INCREASED [None]
